FAERS Safety Report 19714684 (Version 2)
Quarter: 2021Q3

REPORT INFORMATION
  Report Type: Spontaneous
  Country: US (occurrence: US)
  Receive Date: 20210818
  Receipt Date: 20210924
  Transmission Date: 20211014
  Serious: Yes (Other)
  Sender: FDA-Public Use
  Company Number: US-UNITED THERAPEUTICS-UNT-2021-015196

PATIENT
  Sex: Female
  Weight: 78.01 kg

DRUGS (3)
  1. TYVASO [Suspect]
     Active Substance: TREPROSTINIL
     Indication: PULMONARY ARTERIAL HYPERTENSION
     Dosage: UNK
     Dates: start: 20201119
  2. TYVASO [Suspect]
     Active Substance: TREPROSTINIL
     Dosage: 18?54 ?G, QID
  3. BISACODYL. [Suspect]
     Active Substance: BISACODYL
     Indication: PRODUCT USED FOR UNKNOWN INDICATION
     Dosage: UNK
     Route: 065
     Dates: start: 20201119

REACTIONS (6)
  - Foreign body in gastrointestinal tract [Unknown]
  - Product dose omission issue [Recovered/Resolved]
  - Impaired gastric emptying [Unknown]
  - Arthralgia [Unknown]
  - Gastric haemorrhage [Unknown]
  - Costochondritis [Unknown]

NARRATIVE: CASE EVENT DATE: 2021
